FAERS Safety Report 4345245-4 (Version None)
Quarter: 2004Q2

REPORT INFORMATION
  Report Type: 
  Country: None (occurrence: None)
  Receive Date: 20040420
  Receipt Date: 20040331
  Transmission Date: 20050107
  Serious: Yes (Disabling, Other)
  Sender: FDA-Public Use
  Company Number: A-CH2004-05034

PATIENT
  Age: 29 Year
  Sex: Female
  Weight: 50.1 kg

DRUGS (10)
  1. TRACLEER [Suspect]
     Indication: PULMONARY HYPERTENSION
     Dosage: 62.5, BID, ORAL; 125 MG, BID, ORAL
     Route: 048
     Dates: start: 20030610, end: 20040128
  2. TRACLEER [Suspect]
     Indication: PULMONARY HYPERTENSION
     Dosage: 62.5, BID, ORAL; 125 MG, BID, ORAL
     Route: 048
     Dates: start: 20040316
  3. ALDACTONE [Suspect]
     Dosage: 25 MG
     Dates: start: 20031230
  4. OMEPRAZOLE [Concomitant]
  5. NIFEDIPINE [Concomitant]
  6. ACETAMINOPHEN [Concomitant]
  7. COLOXYL WITH SENNA (DOCUSATE SODIUM) [Concomitant]
  8. FERROGRADUMET (FERROUS SULFATE) [Concomitant]
  9. THYROXIN (LEVOTHYROXINE) [Concomitant]
  10. WARFARIN SODIUM [Concomitant]

REACTIONS (9)
  - ALANINE AMINOTRANSFERASE INCREASED [None]
  - BLOOD ALKALINE PHOSPHATASE INCREASED [None]
  - BLOOD BILIRUBIN INCREASED [None]
  - GAMMA-GLUTAMYLTRANSFERASE INCREASED [None]
  - LIVER FUNCTION TEST ABNORMAL [None]
  - LOBAR PNEUMONIA [None]
  - NEUROPATHY PERIPHERAL [None]
  - OEDEMA PERIPHERAL [None]
  - WEIGHT DECREASED [None]
